FAERS Safety Report 10028866 (Version 4)
Quarter: 2015Q3

REPORT INFORMATION
  Report Type: Spontaneous
  Country: US (occurrence: US)
  Receive Date: 20140321
  Receipt Date: 20150727
  Transmission Date: 20151125
  Serious: Yes (Other)
  Sender: FDA-Public Use
  Company Number: US-SANOFI-AVENTIS-2012SA037912

PATIENT
  Age: 59 Year

DRUGS (5)
  1. PLAVIX [Suspect]
     Active Substance: CLOPIDOGREL BISULFATE
     Indication: ACUTE CORONARY SYNDROME
     Route: 048
     Dates: start: 200201, end: 201007
  2. ASPIRIN. [Concomitant]
     Active Substance: ASPIRIN
     Dates: start: 201007
  3. ASPIRIN. [Concomitant]
     Active Substance: ASPIRIN
     Dates: start: 2004, end: 2005
  4. PLAVIX [Suspect]
     Active Substance: CLOPIDOGREL BISULFATE
     Indication: STENT PLACEMENT
     Route: 048
     Dates: start: 200201, end: 201007
  5. ASPIRIN. [Concomitant]
     Active Substance: ASPIRIN
     Dates: start: 200201, end: 200306

REACTIONS (3)
  - Gastrointestinal haemorrhage [Unknown]
  - Multiple injuries [Unknown]
  - Ulcer haemorrhage [Unknown]

NARRATIVE: CASE EVENT DATE: 201007
